FAERS Safety Report 7944782-0 (Version None)
Quarter: 2011Q4

REPORT INFORMATION
  Report Type: 
  Country: None (occurrence: None)
  Receive Date: 20111114
  Receipt Date: 20110915
  Transmission Date: 20120403
  Serious: No
  Sender: FDA-Public Use
  Company Number: 1000013972

PATIENT
  Age: 64 Year
  Sex: Female

DRUGS (1)
  1. SAVELLA [Suspect]
     Indication: FIBROMYALGIA
     Dosage: 12.5 MG (12.5 MG, 1 IN 1 D), ORAL ;
     Route: 048
     Dates: start: 20100310, end: 20100312

REACTIONS (1)
  - BLOOD PRESSURE INCREASED [None]
